FAERS Safety Report 4444732-8 (Version None)
Quarter: 2004Q3

REPORT INFORMATION
  Report Type: 
  Country: None (occurrence: None)
  Receive Date: 20040903
  Receipt Date: 20040824
  Transmission Date: 20050211
  Serious: Yes (Other)
  Sender: FDA-Public Use
  Company Number: 2004059943

PATIENT
  Age: 40 Year
  Sex: Female

DRUGS (1)
  1. LIPITOR [Suspect]
     Indication: ILL-DEFINED DISORDER
     Dosage: UNK (40 MG), UNKNOWN
     Route: 065

REACTIONS (3)
  - GASTRIC ULCER [None]
  - GASTROINTESTINAL INFECTION [None]
  - INTESTINAL RESECTION [None]
